FAERS Safety Report 17264830 (Version 1)
Quarter: 2020Q1

REPORT INFORMATION
  Report Type: Spontaneous
  Country: US (occurrence: US)
  Receive Date: 20200113
  Receipt Date: 20200113
  Transmission Date: 20200409
  Serious: Yes (Other)
  Sender: FDA-Public Use
  Company Number: US-GE HEALTHCARE LIFE SCIENCES-2020CSU000103

PATIENT
  Age: 67 Year
  Sex: Male

DRUGS (21)
  1. VISIPAQUE [Suspect]
     Active Substance: IODIXANOL
     Dosage: 3.125 MG, SINGLE
  2. VISIPAQUE [Suspect]
     Active Substance: IODIXANOL
     Dosage: 6.25 MG, SINGLE
  3. VISIPAQUE [Suspect]
     Active Substance: IODIXANOL
     Dosage: 25 MG, SINGLE
  4. VISIPAQUE [Suspect]
     Active Substance: IODIXANOL
     Dosage: 6.25 MG, SINGLE
  5. VISIPAQUE [Suspect]
     Active Substance: IODIXANOL
     Dosage: 1.6 MG, SINGLE
  6. VISIPAQUE [Suspect]
     Active Substance: IODIXANOL
     Dosage: 100 MG, SINGLE
  7. VISIPAQUE [Suspect]
     Active Substance: IODIXANOL
     Indication: ANGIOGRAM
     Dosage: 0.16 MG, SINGLE
     Route: 042
  8. VISIPAQUE [Suspect]
     Active Substance: IODIXANOL
     Dosage: 12.5 MG, SINGLE
  9. VISIPAQUE [Suspect]
     Active Substance: IODIXANOL
     Dosage: 25 MG, SINGLE
  10. VISIPAQUE [Suspect]
     Active Substance: IODIXANOL
     Dosage: 200 MG, SINGLE
  11. VISIPAQUE [Suspect]
     Active Substance: IODIXANOL
     Dosage: 400 MG, SINGLE
  12. PREDNISONE. [Concomitant]
     Active Substance: PREDNISONE
     Indication: PREMEDICATION
  13. VISIPAQUE [Suspect]
     Active Substance: IODIXANOL
     Indication: CHEST PAIN
     Dosage: 0.32 MG, SINGLE
  14. VISIPAQUE [Suspect]
     Active Substance: IODIXANOL
     Dosage: 50 MG, SINGLE
  15. VISIPAQUE [Suspect]
     Active Substance: IODIXANOL
     Dosage: 50.00 MG, SINGLE
  16. DIPHENHYDRAMINE. [Concomitant]
     Active Substance: DIPHENHYDRAMINE
     Indication: PREMEDICATION
  17. VISIPAQUE [Suspect]
     Active Substance: IODIXANOL
     Dosage: 800 MG, SINGLE
  18. VISIPAQUE [Suspect]
     Active Substance: IODIXANOL
     Dosage: 1600 MG, SINGLE
  19. VISIPAQUE [Suspect]
     Active Substance: IODIXANOL
     Dosage: 3.125 MG, SINGLE
  20. VISIPAQUE [Suspect]
     Active Substance: IODIXANOL
     Dosage: 12.5 MG, SINGLE
  21. RANITIDINE. [Concomitant]
     Active Substance: RANITIDINE
     Indication: PREMEDICATION

REACTIONS (2)
  - Cough [Recovered/Resolved]
  - Pruritus [Recovered/Resolved]
